FAERS Safety Report 17863421 (Version 2)
Quarter: 2020Q3

REPORT INFORMATION
  Report Type: Spontaneous
  Country: GB (occurrence: GB)
  Receive Date: 20200605
  Receipt Date: 20200702
  Transmission Date: 20201103
  Serious: Yes (Death)
  Sender: FDA-Public Use
  Company Number: GB-BEH-2020117973

PATIENT
  Age: 88 Year
  Sex: Female

DRUGS (3)
  1. FEIBA [Suspect]
     Active Substance: ANTI-INHIBITOR COAGULANT COMPLEX
     Indication: ACQUIRED HAEMOPHILIA
     Route: 065
  2. FACTOR VIII RECOMBINANT (INN) [Suspect]
     Active Substance: ANTIHEMOPHILIC FACTOR, HUMAN RECOMBINANT
     Indication: ACQUIRED HAEMOPHILIA
     Route: 065
  3. FACTOR VIII [Suspect]
     Active Substance: ANTIHEMOPHILIC FACTOR HUMAN
     Indication: ACQUIRED HAEMOPHILIA
     Route: 065

REACTIONS (2)
  - Product use in unapproved indication [Fatal]
  - Drug ineffective for unapproved indication [Fatal]
